FAERS Safety Report 15494089 (Version 1)
Quarter: 2018Q4

REPORT INFORMATION
  Report Type: Spontaneous
  Country: US (occurrence: US)
  Receive Date: 20181005
  Receipt Date: 20181005
  Transmission Date: 20190205
  Serious: No
  Sender: FDA-Public Use
  Company Number: None

PATIENT
  Age: 52 Year
  Sex: Female
  Weight: 66.6 kg

DRUGS (5)
  1. VITAMIN D [Concomitant]
     Active Substance: CHOLECALCIFEROL
  2. MVI [Concomitant]
     Active Substance: VITAMINS
  3. VITAMIN C [Concomitant]
     Active Substance: ASCORBIC ACID
  4. NATURE-THROID [Concomitant]
     Active Substance: THYROID, PORCINE
  5. OSCILLOCOCCINUM [Suspect]
     Active Substance: CAIRINA MOSCHATA HEART/LIVER AUTOLYSATE
     Indication: INFLUENZA
     Dosage: ?          QUANTITY:1 POUCH PELLETS;OTHER ROUTE:DISSOLVED IN MOUTH?
     Dates: start: 20181002, end: 20181004

REACTIONS (4)
  - Abdominal pain upper [None]
  - Diarrhoea [None]
  - Dyspepsia [None]
  - Decreased appetite [None]

NARRATIVE: CASE EVENT DATE: 20181005
